FAERS Safety Report 17556061 (Version 1)
Quarter: 2020Q1

REPORT INFORMATION
  Report Type: Spontaneous
  Country: DE (occurrence: DE)
  Receive Date: 20200318
  Receipt Date: 20200318
  Transmission Date: 20200409
  Serious: Yes (Hospitalization)
  Sender: FDA-Public Use
  Company Number: DE-PFIZER INC-2020114680

PATIENT
  Age: 90 Year
  Sex: Female

DRUGS (11)
  1. PREGABALIN. [Suspect]
     Active Substance: PREGABALIN
     Dosage: 225 MG, UNK
  2. OXYCODON [Suspect]
     Active Substance: OXYCODONE
     Dosage: 10 MG, 1X/DAY (10 MG, 1-0-0-0) SUSTAINED RELEASE
  3. VERTIGOHEEL [ANAMIRTA COCCULUS;CONIUM MACULATUM;HOMEOPATHICS NOS] [Concomitant]
     Dosage: 3X/DAY (1-1-1-0)
  4. CANDESARTAN. [Concomitant]
     Active Substance: CANDESARTAN
     Dosage: 16 MG, 1X/DAY (0-1-0-0)
  5. AMLODIPINE [AMLODIPINE BESILATE] [Concomitant]
     Active Substance: AMLODIPINE BESYLATE
     Dosage: 5 MG, 1X/DAY (1-0-0-0)
  6. PANTOPRAZOL [PANTOPRAZOLE SODIUM SESQUIHYDRATE] [Concomitant]
     Active Substance: PANTOPRAZOLE SODIUM
     Dosage: 40 MG, 1X/DAY (1-0-0-0)
  7. CARBIMAZOL [Concomitant]
     Active Substance: CARBIMAZOLE
     Dosage: 5 MG, 1X/DAY (1-0-0-0)
  8. CALCIUM +D3 [Concomitant]
     Active Substance: CALCIUM\CHOLECALCIFEROL
     Dosage: 500|400 MG/IU, 1-0-1-0
  9. METHYLPREDNISOLON [METHYLPREDNISOLONE] [Suspect]
     Active Substance: METHYLPREDNISOLONE
     Dosage: 0.5-0-0-0
  10. METAMIZOL [Suspect]
     Active Substance: METAMIZOLE SODIUM
     Dosage: UNK
  11. ASPIRIN. [Concomitant]
     Active Substance: ASPIRIN
     Dosage: 100 MG, 1X/DAY (1-0-0-0)

REACTIONS (12)
  - Apathy [Unknown]
  - General physical health deterioration [Unknown]
  - Musculoskeletal pain [Unknown]
  - Fluid intake reduced [Unknown]
  - Disorientation [Unknown]
  - Memory impairment [Unknown]
  - Aphasia [Unknown]
  - Restlessness [Unknown]
  - Tremor [Unknown]
  - Vomiting [Unknown]
  - Headache [Unknown]
  - Disturbance in attention [Unknown]
